FAERS Safety Report 6383794-8 (Version None)
Quarter: 2009Q4

REPORT INFORMATION
  Report Type: 
  Country: None (occurrence: None)
  Receive Date: 20091001
  Receipt Date: 20090424
  Transmission Date: 20100525
  Serious: Yes (Death, Other)
  Sender: FDA-Public Use
  Company Number: CA-NAPPMUNDI-CAN-2009-0001102

PATIENT
  Age: 48 Year
  Sex: Male

DRUGS (6)
  1. MORPHINE SULFATE [Suspect]
     Indication: DRUG USE FOR UNKNOWN INDICATION
  2. ACETAMINOPHEN W/ CODEINE [Suspect]
     Indication: ANKLE FRACTURE
  3. SERTRALINE HCL [Suspect]
     Indication: DRUG USE FOR UNKNOWN INDICATION
  4. LORAZEPAM [Suspect]
     Indication: DRUG USE FOR UNKNOWN INDICATION
  5. CLONAZEPAM [Suspect]
     Indication: DRUG USE FOR UNKNOWN INDICATION
  6. BISACODYL [Suspect]
     Indication: DRUG USE FOR UNKNOWN INDICATION

REACTIONS (4)
  - ARTERIOSCLEROSIS [None]
  - BRONCHOPNEUMONIA [None]
  - DRUG TOXICITY [None]
  - PULMONARY OEDEMA [None]
